FAERS Safety Report 17364564 (Version 2)
Quarter: 2020Q1

REPORT INFORMATION
  Report Type: Spontaneous
  Country: HR (occurrence: HR)
  Receive Date: 20200204
  Receipt Date: 20200219
  Transmission Date: 20200409
  Serious: Yes (Other)
  Sender: FDA-Public Use
  Company Number: HR-US-PROVELL PHARMACEUTICALS LLC-9141989

PATIENT
  Age: 86 Year
  Sex: Female

DRUGS (4)
  1. PHYSIOTENS [Concomitant]
     Active Substance: MOXONIDINE
     Indication: PRODUCT USED FOR UNKNOWN INDICATION
     Dosage: 0.4 (UNSPECIFIED UNITS)
  2. EUTHYROX NF [Suspect]
     Active Substance: LEVOTHYROXINE SODIUM
     Indication: POST PROCEDURAL HYPOTHYROIDISM
     Route: 048
     Dates: start: 20191230, end: 202002
  3. CO-DIOVAN [Concomitant]
     Active Substance: HYDROCHLOROTHIAZIDE\VALSARTAN
     Indication: PRODUCT USED FOR UNKNOWN INDICATION
     Dosage: 160/25 (UNSPECIFIED UNITS)
  4. ROCALTROL [Concomitant]
     Active Substance: CALCITRIOL
     Indication: PRODUCT USED FOR UNKNOWN INDICATION
     Dosage: 0.25 (UNSPECIFIED UNITS)

REACTIONS (8)
  - Chest discomfort [Recovering/Resolving]
  - Strabismus [Recovering/Resolving]
  - Exophthalmos [Recovering/Resolving]
  - Cardiac disorder [Recovering/Resolving]
  - Paraesthesia [Recovering/Resolving]
  - Dysphagia [Recovering/Resolving]
  - Incontinence [Recovering/Resolving]
  - Hypoaesthesia [Recovering/Resolving]

NARRATIVE: CASE EVENT DATE: 202001
